FAERS Safety Report 10439146 (Version 1)
Quarter: 2014Q3

REPORT INFORMATION
  Report Type: Spontaneous
  Country: NL (occurrence: NL)
  Receive Date: 20140908
  Receipt Date: 20140908
  Transmission Date: 20150326
  Serious: Yes (Other)
  Sender: FDA-Public Use
  Company Number: NL-TEVA-505505ISR

PATIENT
  Age: 62 Year
  Sex: Male
  Weight: 95 kg

DRUGS (2)
  1. METFORMIN [Suspect]
     Active Substance: METFORMIN HYDROCHLORIDE
     Indication: PRODUCT USED FOR UNKNOWN INDICATION
     Dosage: 2000 MILLIGRAM DAILY; 2X 1000 MG DAILY
     Route: 048
     Dates: start: 20140304, end: 20140825
  2. LIPITOR TABLET OMHULD 20MG [Concomitant]
     Dosage: 20 MILLIGRAM DAILY; 1X20MG
     Route: 048
     Dates: start: 20000815

REACTIONS (2)
  - Anorectal discomfort [Recovering/Resolving]
  - Diarrhoea haemorrhagic [Recovering/Resolving]

NARRATIVE: CASE EVENT DATE: 20140305
